FAERS Safety Report 7239169-2 (Version None)
Quarter: 2011Q1

REPORT INFORMATION
  Report Type: 
  Country: None (occurrence: None)
  Receive Date: 20110121
  Receipt Date: 20071001
  Transmission Date: 20110831
  Serious: Yes (Death, Hospitalization, Other)
  Sender: FDA-Public Use
  Company Number: PHHY2007US03802

PATIENT
  Age: 53 Year
  Sex: Female

DRUGS (5)
  1. PREDNISONE [Concomitant]
  2. ZOLEDRONIC ACID [Suspect]
     Indication: METASTASES TO BONE
  3. ANASTROZOLE [Concomitant]
     Indication: METASTASES TO BONE
  4. CYCLOSPORINE [Concomitant]
  5. CORTICOSTEROIDS [Concomitant]

REACTIONS (11)
  - COMPLICATIONS OF TRANSPLANTED HEART [None]
  - RENAL FAILURE [None]
  - FATIGUE [None]
  - FLUID OVERLOAD [None]
  - DYSPNOEA EXERTIONAL [None]
  - PULMONARY ARTERIAL WEDGE PRESSURE INCREASED [None]
  - LEFT VENTRICULAR HYPERTROPHY [None]
  - LEFT VENTRICULAR DYSFUNCTION [None]
  - CARDIAC OUTPUT DECREASED [None]
  - HEART TRANSPLANT REJECTION [None]
  - CARDIOGENIC SHOCK [None]
